FAERS Safety Report 16790639 (Version 5)
Quarter: 2020Q4

REPORT INFORMATION
  Report Type: Spontaneous
  Country: US (occurrence: US)
  Receive Date: 20190910
  Receipt Date: 20201203
  Transmission Date: 20210113
  Serious: Yes (Other)
  Sender: FDA-Public Use
  Company Number: US-PFIZER INC-2019385513

PATIENT
  Age: 50 Year
  Sex: Female

DRUGS (3)
  1. SOMAVERT [Suspect]
     Active Substance: PEGVISOMANT
     Dosage: 15 MG, DAILY
     Route: 058
     Dates: start: 20190403
  2. SOMAVERT [Suspect]
     Active Substance: PEGVISOMANT
     Indication: ACROMEGALY
     Dosage: 10 MG, ONCE DAILY
     Route: 058
     Dates: start: 20190403
  3. SOMAVERT [Suspect]
     Active Substance: PEGVISOMANT
     Indication: GIGANTISM
     Dosage: 10 MG, ONCE DAILY
     Route: 058
     Dates: start: 20190411

REACTIONS (5)
  - Nausea [Unknown]
  - Weight increased [Unknown]
  - Gallbladder hypofunction [Unknown]
  - Feeling abnormal [Unknown]
  - Headache [Unknown]
